FAERS Safety Report 5277930-4 (Version None)
Quarter: 2007Q1

REPORT INFORMATION
  Report Type: 
  Country: None (occurrence: None)
  Receive Date: 20070327
  Receipt Date: 20070315
  Transmission Date: 20070707
  Serious: Yes (Hospitalization)
  Sender: FDA-Public Use
  Company Number: PFIZER INC-2007023144

PATIENT
  Sex: Female

DRUGS (3)
  1. IRINOTECAN HCL [Suspect]
     Indication: RECTAL CANCER
     Route: 042
     Dates: start: 20020731, end: 20020731
  2. IRINOTECAN HCL [Suspect]
     Route: 042
     Dates: start: 20020808, end: 20020808
  3. UFT [Concomitant]
     Route: 048
     Dates: start: 20020802, end: 20020820

REACTIONS (4)
  - DIARRHOEA [None]
  - ENTEROCOLITIS [None]
  - LEUKOPENIA [None]
  - SMALL INTESTINAL STENOSIS [None]
